FAERS Safety Report 23526772 (Version 1)
Quarter: 2024Q1

REPORT INFORMATION
  Report Type: Report from Study
  Country: CN (occurrence: CN)
  Receive Date: 20240215
  Receipt Date: 20240215
  Transmission Date: 20240410
  Serious: Yes (Other)
  Sender: FDA-Public Use
  Company Number: CN-JNJFOC-20240213468

PATIENT

DRUGS (3)
  1. GUSELKUMAB [Suspect]
     Active Substance: GUSELKUMAB
     Indication: Pustular psoriasis
     Route: 065
  2. GUSELKUMAB [Suspect]
     Active Substance: GUSELKUMAB
  3. GUSELKUMAB [Suspect]
     Active Substance: GUSELKUMAB

REACTIONS (13)
  - Tuberculosis [Unknown]
  - Neoplasm [Unknown]
  - Mucosal dryness [Unknown]
  - Dyslipidaemia [Unknown]
  - Injection site swelling [Unknown]
  - Injection site haemorrhage [Unknown]
  - Hypersensitivity [Unknown]
  - Upper respiratory tract infection [Unknown]
  - Injection site erythema [Unknown]
  - Injection site pain [Unknown]
  - Headache [Unknown]
  - COVID-19 [Unknown]
  - Off label use [Unknown]
